FAERS Safety Report 4728563-7 (Version None)
Quarter: 2005Q3

REPORT INFORMATION
  Report Type: 
  Country: None (occurrence: None)
  Receive Date: 20050727
  Receipt Date: 20050714
  Transmission Date: 20060218
  Serious: Yes (Hospitalization, Other)
  Sender: FDA-Public Use
  Company Number: 2005-0008560

PATIENT
  Sex: Male

DRUGS (5)
  1. TRUVADA [Suspect]
     Dosage: SEE IMAGE
  2. ATAZANAVIR (ATAZANAVIR) [Concomitant]
  3. RITONAVIR (RITONAVIR) [Concomitant]
  4. EFAVIRENZ [Concomitant]
  5. AMPHOTERICIN B [Concomitant]

REACTIONS (2)
  - BLOOD CREATININE INCREASED [None]
  - MENINGITIS CRYPTOCOCCAL [None]
